FAERS Safety Report 10664080 (Version 2)
Quarter: 2014Q4

REPORT INFORMATION
  Report Type: Spontaneous
  Country: BR (occurrence: BR)
  Receive Date: 20141219
  Receipt Date: 20141219
  Transmission Date: 20150529
  Serious: Yes (Other)
  Sender: FDA-Public Use
  Company Number: BR-SA-2014SA107667

PATIENT
  Sex: Female

DRUGS (1)
  1. CLEXANE [Suspect]
     Active Substance: ENOXAPARIN SODIUM
     Indication: HYPERCOAGULATION
     Route: 065

REACTIONS (8)
  - Reversible cerebral vasoconstriction syndrome [Recovered/Resolved]
  - Visual impairment [Recovered/Resolved]
  - Foetal macrosomia [Unknown]
  - Exposure during pregnancy [Unknown]
  - Aneurysm [Recovered/Resolved]
  - Aphasia [Recovered/Resolved]
  - Cerebral haemorrhage [Recovered/Resolved]
  - Cerebral vasoconstriction [Recovered/Resolved]

NARRATIVE: CASE EVENT DATE: 2014
